FAERS Safety Report 7352697-4 (Version None)
Quarter: 2011Q1

REPORT INFORMATION
  Report Type: 
  Country: None (occurrence: None)
  Receive Date: 20110302
  Receipt Date: 20101206
  Transmission Date: 20110831
  Serious: Yes (Other)
  Sender: FDA-Public Use
  Company Number: 163-21880-10120914

PATIENT
  Sex: Female

DRUGS (3)
  1. REVLIMID [Suspect]
     Indication: MULTIPLE MYELOMA
     Dosage: 5 MG, 1 IN 1 D, PO, 15 MG, 1 IN 1 D, PO, 10 MG, DAILY FOR 28 DAYS, PO
     Route: 048
     Dates: start: 20100201
  2. REVLIMID [Suspect]
     Indication: MULTIPLE MYELOMA
     Dosage: 5 MG, 1 IN 1 D, PO, 15 MG, 1 IN 1 D, PO, 10 MG, DAILY FOR 28 DAYS, PO
     Route: 048
     Dates: start: 20091101
  3. REVLIMID [Suspect]
     Indication: MULTIPLE MYELOMA
     Dosage: 5 MG, 1 IN 1 D, PO, 15 MG, 1 IN 1 D, PO, 10 MG, DAILY FOR 28 DAYS, PO
     Route: 048
     Dates: start: 20100901, end: 20100101

REACTIONS (1)
  - EYE OPERATION [None]
